FAERS Safety Report 6753877-9 (Version None)
Quarter: 2010Q2

REPORT INFORMATION
  Report Type: 
  Country: None (occurrence: None)
  Receive Date: 20100603
  Receipt Date: 20100528
  Transmission Date: 20101027
  Serious: Yes (Hospitalization)
  Sender: FDA-Public Use
  Company Number: A0861913A

PATIENT
  Age: 30 Year
  Sex: Female

DRUGS (1)
  1. ALLI [Suspect]
     Indication: WEIGHT LOSS DIET
     Route: 048
     Dates: start: 20100201, end: 20100101

REACTIONS (8)
  - BLOOD PRESSURE DECREASED [None]
  - HYPERSENSITIVITY [None]
  - PNEUMONIA [None]
  - PRURITUS [None]
  - RASH [None]
  - RASH MACULAR [None]
  - VEIN DISORDER [None]
  - VIRAL INFECTION [None]
